FAERS Safety Report 9512063 (Version 3)
Quarter: 2014Q1

REPORT INFORMATION
  Report Type: Spontaneous
  Country: US (occurrence: US)
  Receive Date: 20130910
  Receipt Date: 20140203
  Transmission Date: 20141002
  Serious: Yes (Other)
  Sender: FDA-Public Use
  Company Number: US-PFIZER INC-2013257736

PATIENT
  Age: 61 Year
  Sex: Female
  Weight: 72.11 kg

DRUGS (7)
  1. PREMARIN [Suspect]
     Indication: HOT FLUSH
     Dosage: 0.625 MG, 1X/DAY
     Route: 048
     Dates: end: 201401
  2. CELEBREX [Suspect]
     Indication: OSTEOARTHRITIS
     Dosage: 200 MG, 1X/DAY
  3. LISINOPRIL [Concomitant]
     Indication: BLOOD PRESSURE
     Dosage: UNK
  4. LESCOL [Concomitant]
     Indication: BLOOD CHOLESTEROL ABNORMAL
     Dosage: 20 MG, 1X/DAY
  5. TRANXENE [Concomitant]
     Indication: ANXIETY
     Dosage: 7.5 MG, 1X/DAY
  6. AMITRIPTYLINE [Concomitant]
     Indication: SLEEP DISORDER
     Dosage: 50 MG, 1X/DAY
  7. LORTAB [Concomitant]
     Indication: PAIN
     Dosage: UNK, AS NEEDED

REACTIONS (6)
  - Back disorder [Unknown]
  - Hepatic enzyme abnormal [Unknown]
  - Hot flush [Not Recovered/Not Resolved]
  - Feeling abnormal [Not Recovered/Not Resolved]
  - Frustration [Not Recovered/Not Resolved]
  - Eating disorder [Not Recovered/Not Resolved]
